FAERS Safety Report 4339020-4 (Version None)
Quarter: 2004Q2

REPORT INFORMATION
  Report Type: 
  Country: None (occurrence: None)
  Receive Date: 20040412
  Receipt Date: 20040325
  Transmission Date: 20050107
  Serious: Yes (Hospitalization, Other)
  Sender: FDA-Public Use
  Company Number: 192478

PATIENT
  Age: 37 Year
  Sex: Female
  Weight: 87.5442 kg

DRUGS (8)
  1. AVONEX [Suspect]
     Indication: MULTIPLE SCLEROSIS
     Dosage: 30 MCG QW IM
     Dates: start: 20000101, end: 20040101
  2. AVONEX [Suspect]
     Indication: MULTIPLE SCLEROSIS
     Dosage: 30 MCG QW IM
     Dates: start: 20040101
  3. ADDERALL 10 [Concomitant]
  4. NEURONTIN [Concomitant]
  5. TYLENOL PM [Concomitant]
  6. MULTI-VITAMINS [Concomitant]
  7. AMBIEN [Concomitant]
  8. BENADRYL ^WARNER LAMBERT^ /USA/ [Concomitant]

REACTIONS (8)
  - CHOLELITHIASIS [None]
  - FALLOPIAN TUBE CANCER [None]
  - GASTROOESOPHAGEAL REFLUX DISEASE [None]
  - INJECTION SITE HAEMORRHAGE [None]
  - OVARIAN CYST [None]
  - PELVIC PERITONEAL ADHESIONS [None]
  - SQUAMOUS CELL CARCINOMA [None]
  - VAGINAL CANCER [None]
